FAERS Safety Report 15645363 (Version 2)
Quarter: 2018Q4

REPORT INFORMATION
  Report Type: Spontaneous
  Country: US (occurrence: US)
  Receive Date: 20181121
  Receipt Date: 20181121
  Transmission Date: 20190205
  Serious: Yes (Hospitalization)
  Sender: FDA-Public Use
  Company Number: US-CELGENEUS-USA-20181104309

PATIENT
  Age: 68 Year
  Sex: Female
  Weight: 65.83 kg

DRUGS (1)
  1. REVLIMID [Suspect]
     Active Substance: LENALIDOMIDE
     Indication: PLASMA CELL MYELOMA
     Dosage: 25 MILLIGRAM
     Route: 048
     Dates: start: 201810

REACTIONS (4)
  - Mobility decreased [Unknown]
  - Renal impairment [Unknown]
  - White blood cell count decreased [Unknown]
  - Back disorder [Unknown]

NARRATIVE: CASE EVENT DATE: 20181101
